FAERS Safety Report 15557914 (Version 1)
Quarter: 2018Q4

REPORT INFORMATION
  Report Type: Spontaneous
  Country: BR (occurrence: BR)
  Receive Date: 20181027
  Receipt Date: 20181027
  Transmission Date: 20190205
  Serious: Yes (Other)
  Sender: FDA-Public Use
  Company Number: BR-009507513-1810BRA009904

PATIENT
  Sex: Male
  Weight: 102 kg

DRUGS (7)
  1. JANUMET XR [Suspect]
     Active Substance: METFORMIN HYDROCHLORIDE\SITAGLIPTIN PHOSPHATE
     Dosage: UNK
  2. JANUMET [Suspect]
     Active Substance: METFORMIN HYDROCHLORIDE\SITAGLIPTIN PHOSPHATE
     Dosage: 50/1000 MG (2 TABLETS PER DAY)
     Route: 048
     Dates: start: 2015
  3. HYDROCHLOROTHIAZIDE. [Concomitant]
     Active Substance: HYDROCHLOROTHIAZIDE
     Indication: HYPERTENSION
     Dosage: 25 MG (1 TABLET), PER DAY
     Dates: start: 2013
  4. DIOVAN AMLO [Concomitant]
     Active Substance: AMLODIPINE\VALSARTAN
     Indication: HYPERTENSION
     Dosage: 320/5 MG (1 TABLET), PER DAY
     Dates: start: 2013
  5. VYTORIN [Suspect]
     Active Substance: EZETIMIBE\SIMVASTATIN
     Indication: TYPE 2 DIABETES MELLITUS
     Dosage: 10/20 MG (1 TABLET, AS REPORTED)
     Route: 048
     Dates: start: 2015
  6. JANUMET [Suspect]
     Active Substance: METFORMIN HYDROCHLORIDE\SITAGLIPTIN PHOSPHATE
     Indication: TYPE 2 DIABETES MELLITUS
     Dosage: 50/1000 MG, UNK
     Route: 048
     Dates: start: 2013, end: 2014
  7. DIAMICRON [Concomitant]
     Active Substance: GLICLAZIDE
     Indication: TYPE 2 DIABETES MELLITUS
     Dosage: 60 MG (2 TABLETS), PER DAY

REACTIONS (5)
  - Product dispensing error [Unknown]
  - Knee operation [Unknown]
  - Spinal operation [Unknown]
  - Wrong product administered [Unknown]
  - Shoulder operation [Unknown]

NARRATIVE: CASE EVENT DATE: 2013
